FAERS Safety Report 24153262 (Version 1)
Quarter: 2024Q3

REPORT INFORMATION
  Report Type: Spontaneous
  Country: IT (occurrence: IT)
  Receive Date: 20240730
  Receipt Date: 20240730
  Transmission Date: 20241016
  Serious: Yes (Other)
  Sender: MYLAN
  Company Number: None

PATIENT
  Age: 8 Day
  Sex: Male
  Weight: 1.61 kg

DRUGS (1)
  1. REMIFENTANIL [Suspect]
     Active Substance: REMIFENTANIL
     Indication: Product used for unknown indication
     Dosage: 1 MILLIGRAM (1 MG/KG IN INTRAVENOUS BOLUS IN 15 MINUTES)
     Route: 042
     Dates: start: 20240621, end: 20240621

REACTIONS (2)
  - Apnoea [Recovered/Resolved]
  - Abdominal distension [Recovered/Resolved]

NARRATIVE: CASE EVENT DATE: 20240621
